FAERS Safety Report 23083476 (Version 2)
Quarter: 2023Q4

REPORT INFORMATION
  Report Type: Spontaneous
  Country: US (occurrence: US)
  Receive Date: 20231019
  Receipt Date: 20231228
  Transmission Date: 20240110
  Serious: Yes (Hospitalization, Other)
  Sender: FDA-Public Use
  Company Number: US-Calliditas-2023CAL01330

PATIENT
  Age: 51 Year
  Sex: Male
  Weight: 112.3 kg

DRUGS (1)
  1. TARPEYO [Suspect]
     Active Substance: BUDESONIDE
     Indication: IgA nephropathy
     Dosage: 16MG (4MG CAPSULES) ONCE DAILY (16UMOL/MG)
     Route: 048
     Dates: start: 20230712

REACTIONS (11)
  - Feeling abnormal [Unknown]
  - Prescribed underdose [Recovered/Resolved]
  - Inappropriate schedule of product administration [Unknown]
  - Pain [Unknown]
  - Kidney infection [Unknown]
  - Cystitis [Unknown]
  - Fungal infection [Unknown]
  - Blood glucose increased [Unknown]
  - Hypertensive urgency [Unknown]
  - Haemorrhage urinary tract [Unknown]
  - Product administration error [Unknown]
